FAERS Safety Report 5285416-6 (Version None)
Quarter: 2007Q2

REPORT INFORMATION
  Report Type: 
  Country: None (occurrence: None)
  Receive Date: 20070403
  Receipt Date: 20070326
  Transmission Date: 20071010
  Serious: Yes (Other)
  Sender: FDA-Public Use
  Company Number: GB-MERCK-0703GBR00124

PATIENT
  Sex: Male

DRUGS (3)
  1. ZOCOR [Suspect]
     Indication: HYPERCHOLESTEROLAEMIA
     Route: 048
  2. ZOCOR [Suspect]
     Route: 048
     Dates: start: 20010101, end: 20010101
  3. CITALOPRAM [Concomitant]
     Route: 065

REACTIONS (4)
  - ANGIOEDEMA [None]
  - COORDINATION ABNORMAL [None]
  - EYE SWELLING [None]
  - HEADACHE [None]
